FAERS Safety Report 5683569-9 (Version None)
Quarter: 2008Q2

REPORT INFORMATION
  Report Type: 
  Country: None (occurrence: None)
  Receive Date: 20080324
  Receipt Date: 20071106
  Transmission Date: 20081010
  Serious: Yes (Other)
  Sender: FDA-Public Use
  Company Number: WWISSUE-128

PATIENT
  Age: 69 Year
  Sex: Female

DRUGS (2)
  1. ACETAMINOPHEN, BUTALBITAL, CAFFEINE, AND CODEINE PHOSPHATE [Suspect]
     Indication: MIGRAINE
     Dosage: ORAL
     Route: 048
  2. FLURAZEPAM [Concomitant]

REACTIONS (1)
  - DRUG INEFFECTIVE [None]
